FAERS Safety Report 10946515 (Version 1)
Quarter: 2015Q1

REPORT INFORMATION
  Report Type: Report from Study
  Country: GR (occurrence: GR)
  Receive Date: 20150323
  Receipt Date: 20150323
  Transmission Date: 20150721
  Serious: Yes (Hospitalization)
  Sender: FDA-Public Use
  Company Number: GR-CELGENE-066-21660-14064834

PATIENT
  Age: 41 Year
  Sex: Female
  Weight: 41 kg

DRUGS (13)
  1. XANAX [Concomitant]
     Active Substance: ALPRAZOLAM
     Indication: ANXIETY DISORDER
     Route: 048
     Dates: start: 20121115
  2. DEPON [Concomitant]
     Active Substance: ACETAMINOPHEN
     Indication: ADVERSE EVENT
     Route: 041
     Dates: start: 201211
  3. LONALGAL [Concomitant]
     Indication: ANALGESIC THERAPY
     Dosage: 30+500 MG
     Route: 048
     Dates: start: 20121115
  4. SAROTEN [Concomitant]
     Active Substance: AMITRIPTYLINE
     Indication: DEPRESSION
     Route: 065
  5. ABRAXANE [Suspect]
     Active Substance: PACLITAXEL
     Indication: GASTRIC CANCER
     Dosage: 200 MG (150 DOSAGE FORM)
     Route: 041
     Dates: start: 20121115, end: 20121122
  6. DEPON [Concomitant]
     Active Substance: ACETAMINOPHEN
     Indication: ANALGESIC THERAPY
     Dosage: 30 MILLIGRAM
     Route: 048
     Dates: start: 20121115
  7. MESULID [Concomitant]
     Active Substance: NIMESULIDE
     Indication: PAIN
     Route: 065
  8. ZOMETA [Concomitant]
     Active Substance: ZOLEDRONIC ACID
     Indication: METASTASES TO BONE
     Dosage: 50 MILLIGRAM
     Route: 041
     Dates: start: 20120731
  9. ABRAXANE [Suspect]
     Active Substance: PACLITAXEL
     Dosage: 200 MG (150 DOSAGE FORM)
     Route: 041
     Dates: end: 20130308
  10. CYMBALTA [Concomitant]
     Active Substance: DULOXETINE HYDROCHLORIDE
     Indication: ANXIETY DISORDER
     Dosage: 60 MILLIGRAM
     Route: 048
     Dates: start: 20121115
  11. REMERON [Concomitant]
     Active Substance: MIRTAZAPINE
     Indication: DEPRESSION
     Dosage: .5 MILLIGRAM
     Route: 048
     Dates: start: 20121115
  12. STILNOX [Concomitant]
     Active Substance: ZOLPIDEM TARTRATE
     Indication: DEPRESSION
     Route: 065
  13. FENTANYL. [Concomitant]
     Active Substance: FENTANYL
     Indication: ANALGESIC THERAPY
     Route: 065
     Dates: start: 20121115, end: 20121122

REACTIONS (3)
  - Pyrexia [Recovered/Resolved]
  - Alopecia [Recovered/Resolved]
  - Chills [Recovered/Resolved]

NARRATIVE: CASE EVENT DATE: 20121115
